FAERS Safety Report 6676087-2 (Version None)
Quarter: 2010Q2

REPORT INFORMATION
  Report Type: 
  Country: None (occurrence: None)
  Receive Date: 20100412
  Receipt Date: 20100331
  Transmission Date: 20101027
  Serious: Yes (Hospitalization)
  Sender: FDA-Public Use
  Company Number: IT-PFIZER INC-2010034926

PATIENT
  Age: 75 Year
  Sex: Male

DRUGS (4)
  1. SUTENT [Suspect]
     Indication: RENAL NEOPLASM
     Dosage: 50 MG, CYCLIC
     Route: 048
     Dates: start: 20090911, end: 20100309
  2. FUROSEMIDE [Concomitant]
     Dosage: 25 MG
     Route: 048
  3. NORVASC [Concomitant]
     Dosage: 5 MG
     Route: 048
  4. ALLOPURINOL [Concomitant]
     Dosage: 150 MG

REACTIONS (1)
  - CARDIAC FAILURE [None]
